FAERS Safety Report 6390734-4 (Version None)
Quarter: 2009Q4

REPORT INFORMATION
  Report Type: 
  Country: None (occurrence: None)
  Receive Date: 20091006
  Receipt Date: 20090930
  Transmission Date: 20100525
  Serious: Yes (Death, Other)
  Sender: FDA-Public Use
  Company Number: PHHY2009CA42167

PATIENT
  Age: 55 Year
  Sex: Male

DRUGS (6)
  1. CYCLOSPORINE [Suspect]
     Indication: LUNG TRANSPLANT
  2. MYCOPHENOLATE MOFETIL [Suspect]
     Indication: LUNG TRANSPLANT
     Dosage: 1 TO 1.5 G TWICE DAILY
  3. PREDNISONE [Suspect]
     Indication: LUNG TRANSPLANT
     Dosage: 0.5 MG/KG/DAY
  4. PREDNISONE [Suspect]
     Dosage: 0.05 MG/KG/DAY
  5. THYMOGLOBULIN [Concomitant]
     Indication: LUNG TRANSPLANT
  6. TRIMETHOPRIM + SULFAMETHOXAZOLE [Concomitant]
     Indication: ANTIFUNGAL PROPHYLAXIS
     Dosage: 3 TIMES PER WEEK
     Route: 048

REACTIONS (7)
  - ATELECTASIS [None]
  - BRONCHITIS [None]
  - NECROSIS OF BRONCHIOLI [None]
  - PSEUDOMONAS INFECTION [None]
  - SEPSIS [None]
  - STAPHYLOCOCCAL INFECTION [None]
  - TRACHEOBRONCHITIS [None]
